FAERS Safety Report 8024036-7 (Version None)
Quarter: 2012Q1

REPORT INFORMATION
  Report Type: 
  Country: None (occurrence: None)
  Receive Date: 20120105
  Receipt Date: 20120103
  Transmission Date: 20120608
  Serious: Yes (Hospitalization)
  Sender: FDA-Public Use
  Company Number: IL-BRISTOL-MYERS SQUIBB COMPANY-16325920

PATIENT
  Age: 79 Year

DRUGS (1)
  1. IPILIMUMAB [Suspect]
     Dates: start: 20110905

REACTIONS (4)
  - HYPOKALAEMIA [None]
  - DIARRHOEA [None]
  - ASTHENIA [None]
  - HYPOTENSION [None]
